FAERS Safety Report 9973144 (Version 2)
Quarter: 2014Q1

REPORT INFORMATION
  Report Type: Report from Study
  Country: US (occurrence: US)
  Receive Date: 20140306
  Receipt Date: 20140306
  Transmission Date: 20141002
  Serious: No
  Sender: FDA-Public Use
  Company Number: US-ABBVIE-13P-163-1100646-00

PATIENT
  Age: 61 Year
  Sex: Female

DRUGS (10)
  1. HUMIRA [Suspect]
     Indication: PSORIASIS
     Dates: start: 20130306
  2. LUMIGAN [Concomitant]
     Indication: GLAUCOMA
     Dosage: EYE DROPS
  3. ALPHAGAN [Concomitant]
     Indication: GLAUCOMA
     Dosage: EYE DROPS
  4. TIMOLOL [Concomitant]
     Indication: GLAUCOMA
     Dosage: EYE DROPS
  5. LISINOPRIL [Concomitant]
     Indication: BLOOD PRESSURE
  6. GLIMEPIRIDE [Concomitant]
     Indication: DIABETES MELLITUS
  7. GEMFIBROZIL [Concomitant]
     Indication: BLOOD TRIGLYCERIDES INCREASED
  8. OMEPRAZOLE [Concomitant]
     Indication: GASTROOESOPHAGEAL REFLUX DISEASE
  9. FLUTICASONE [Concomitant]
     Indication: SINUS DISORDER
     Dosage: 1 SPRAY EACH NOSTRIL
  10. FLUTICASONE [Concomitant]

REACTIONS (2)
  - Drug dose omission [Unknown]
  - Hepatic enzyme increased [Not Recovered/Not Resolved]
